FAERS Safety Report 8872741 (Version 2)
Quarter: 2012Q4

REPORT INFORMATION
  Report Type: 
  Country: US (occurrence: US)
  Receive Date: 20121029
  Receipt Date: 20121205
  Transmission Date: 20130627
  Serious: Yes (Other)
  Sender: FDA-Public Use
  Company Number: US-NOVOPROD-362653

PATIENT
  Age: 13 Year
  Sex: Female

DRUGS (1)
  1. NORDITROPIN FLEXPRO 6.7 MG/ML [Suspect]
     Indication: PRODUCT USED FOR UNKNOWN INDICATION
     Dosage: 0.8 mg, qd
     Route: 058
     Dates: start: 200908

REACTIONS (1)
  - Tonsillectomy [Recovered/Resolved]
